FAERS Safety Report 26110799 (Version 1)
Quarter: 2025Q4

REPORT INFORMATION
  Report Type: Spontaneous
  Country: EU (occurrence: EU)
  Receive Date: 20251202
  Receipt Date: 20251202
  Transmission Date: 20260118
  Serious: Yes (Other)
  Sender: GE HEALTHCARE
  Company Number: None

PATIENT
  Age: 46 Year
  Sex: Female

DRUGS (2)
  1. VISIPAQUE [Interacting]
     Active Substance: IODIXANOL
     Indication: Pelvic vein embolisation
     Dosage: 150 ML, TOTAL
     Route: 042
     Dates: start: 20250120
  2. LIPIODOL [Interacting]
     Active Substance: ETHIODIZED OIL
     Indication: Pelvic vein embolisation
     Dosage: 5 ML, QD
     Route: 042
     Dates: start: 20250120

REACTIONS (2)
  - Drug interaction [Recovering/Resolving]
  - Hyperthyroidism [Recovering/Resolving]

NARRATIVE: CASE EVENT DATE: 20250120
